FAERS Safety Report 17302448 (Version 3)
Quarter: 2020Q1

REPORT INFORMATION
  Report Type: Spontaneous
  Country: US (occurrence: US)
  Receive Date: 20200122
  Receipt Date: 20200218
  Transmission Date: 20200409
  Serious: Yes (Hospitalization)
  Sender: FDA-Public Use
  Company Number: US-CELGENEUS-USA-20200107134

PATIENT
  Age: 76 Year
  Sex: Female
  Weight: 61.2 kg

DRUGS (77)
  1. ABRAXANE [Suspect]
     Active Substance: PACLITAXEL
     Dosage: 62.5 MILLIGRAM/SQ. METER
     Route: 065
     Dates: start: 20190918, end: 20190918
  2. ABRAXANE [Suspect]
     Active Substance: PACLITAXEL
     Dosage: 62.5 MILLIGRAM/SQ. METER
     Route: 065
     Dates: start: 20191218, end: 20191218
  3. ATIVAN [Concomitant]
     Active Substance: LORAZEPAM
     Indication: NAUSEA
     Route: 048
     Dates: start: 20190227
  4. DECADRON [Concomitant]
     Active Substance: DEXAMETHASONE
     Indication: NAUSEA
     Dosage: 4 MILLIGRAM
     Route: 048
     Dates: start: 20190313
  5. MELATONIN [Concomitant]
     Active Substance: MELATONIN
     Indication: INSOMNIA
     Dosage: 3 MILLIGRAM
     Route: 048
     Dates: start: 20190315
  6. CREON [Concomitant]
     Active Substance: PANCRELIPASE AMYLASE\PANCRELIPASE LIPASE\PANCRELIPASE PROTEASE
     Indication: SUPPLEMENTATION THERAPY
     Dosage: 2 DOSAGE FORMS
     Route: 048
     Dates: start: 20190601
  7. POTASSIUM CHLORIDE. [Concomitant]
     Active Substance: POTASSIUM CHLORIDE
     Indication: HYPOKALAEMIA
     Dosage: 20 MILLIEQUIVALENTS
     Route: 048
     Dates: start: 2018, end: 20190626
  8. ABRAXANE [Suspect]
     Active Substance: PACLITAXEL
     Indication: DUCTAL ADENOCARCINOMA OF PANCREAS
     Dosage: 125 MILLIGRAM/SQ. METER
     Route: 065
     Dates: start: 20190313, end: 20190313
  9. ABRAXANE [Suspect]
     Active Substance: PACLITAXEL
     Dosage: 70.3 MILLIGRAM/SQ. METER
     Route: 065
     Dates: start: 20190731, end: 20190731
  10. ABRAXANE [Suspect]
     Active Substance: PACLITAXEL
     Dosage: 62.5 MILLIGRAM/SQ. METER
     Route: 065
     Dates: start: 20191023, end: 20191023
  11. ABRAXANE [Suspect]
     Active Substance: PACLITAXEL
     Dosage: 62.5 MILLIGRAM/SQ. METER
     Route: 065
     Dates: start: 20191204, end: 20191204
  12. GEMCITABINE. [Suspect]
     Active Substance: GEMCITABINE
     Dosage: 750 MILLIGRAM/SQ. METER
     Route: 065
     Dates: start: 20190320, end: 20190320
  13. GEMCITABINE. [Suspect]
     Active Substance: GEMCITABINE
     Dosage: 750 MILLIGRAM/SQ. METER
     Route: 065
     Dates: start: 20190327, end: 20190327
  14. GEMCITABINE. [Suspect]
     Active Substance: GEMCITABINE
     Dosage: 500 MILLIGRAM/SQ. METER
     Route: 065
     Dates: start: 20191120, end: 20191120
  15. GEMCITABINE. [Suspect]
     Active Substance: GEMCITABINE
     Dosage: 500 MILLIGRAM/SQ. METER
     Route: 065
     Dates: start: 20191211, end: 20191211
  16. GEMCITABINE. [Suspect]
     Active Substance: GEMCITABINE
     Dosage: 500 MILLIGRAM/SQ. METER
     Route: 065
     Dates: start: 20200108, end: 20200108
  17. ATIVAN [Concomitant]
     Active Substance: LORAZEPAM
     Indication: INSOMNIA
  18. ATIVAN [Concomitant]
     Active Substance: LORAZEPAM
     Indication: ANXIETY
  19. ABRAXANE [Suspect]
     Active Substance: PACLITAXEL
     Dosage: 93.8 MILLIGRAM/SQ. METER
     Route: 065
     Dates: start: 20190327, end: 20190327
  20. ABRAXANE [Suspect]
     Active Substance: PACLITAXEL
     Dosage: 93.7 MILLIGRAM/SQ. METER
     Route: 065
     Dates: start: 20190417, end: 20190417
  21. ABRAXANE [Suspect]
     Active Substance: PACLITAXEL
     Dosage: 93.8 MILLIGRAM/SQ. METER
     Route: 065
     Dates: start: 20190821, end: 20190821
  22. ABRAXANE [Suspect]
     Active Substance: PACLITAXEL
     Dosage: 62.5 MILLIGRAM/SQ. METER
     Route: 065
     Dates: start: 20190911, end: 20190911
  23. ABRAXANE [Suspect]
     Active Substance: PACLITAXEL
     Dosage: 62.5 MILLIGRAM/SQ. METER
     Route: 065
     Dates: start: 20190925, end: 20190925
  24. ABRAXANE [Suspect]
     Active Substance: PACLITAXEL
     Dosage: 62.5 MILLIGRAM/SQ. METER
     Route: 065
     Dates: start: 20191009, end: 20191009
  25. ABRAXANE [Suspect]
     Active Substance: PACLITAXEL
     Dosage: 62.5 MILLIGRAM/SQ. METER
     Route: 065
     Dates: start: 20191120, end: 20191120
  26. GEMCITABINE. [Suspect]
     Active Substance: GEMCITABINE
     Dosage: 750 MILLIGRAM/SQ. METER
     Route: 065
     Dates: start: 20190417, end: 20190417
  27. GEMCITABINE. [Suspect]
     Active Substance: GEMCITABINE
     Dosage: 750 MILLIGRAM/SQ. METER
     Route: 065
     Dates: start: 20190424, end: 20190424
  28. GEMCITABINE. [Suspect]
     Active Substance: GEMCITABINE
     Dosage: 750 MILLIGRAM/SQ. METER
     Route: 065
     Dates: start: 20190515, end: 20190515
  29. GEMCITABINE. [Suspect]
     Active Substance: GEMCITABINE
     Dosage: 750 MILLIGRAM/SQ. METER
     Route: 065
     Dates: start: 20190522, end: 20190522
  30. GEMCITABINE. [Suspect]
     Active Substance: GEMCITABINE
     Dosage: 750 MILLIGRAM/SQ. METER
     Route: 065
     Dates: start: 20190724, end: 20190724
  31. GEMCITABINE. [Suspect]
     Active Substance: GEMCITABINE
     Dosage: 562.5 MILLIGRAM/SQ. METER
     Route: 065
     Dates: start: 20190731, end: 20190731
  32. GEMCITABINE. [Suspect]
     Active Substance: GEMCITABINE
     Dosage: 500 MILLIGRAM/SQ. METER
     Route: 065
     Dates: start: 20190925, end: 20190925
  33. GEMCITABINE. [Suspect]
     Active Substance: GEMCITABINE
     Dosage: 500 MILLIGRAM/SQ. METER
     Route: 065
     Dates: start: 20191023, end: 20191023
  34. DECADRON [Concomitant]
     Active Substance: DEXAMETHASONE
     Dosage: 12 MILLIGRAM
     Route: 048
     Dates: start: 20190313
  35. POTASSIUM CHLORIDE. [Concomitant]
     Active Substance: POTASSIUM CHLORIDE
     Dosage: 20 MILLIEQUIVALENTS
     Route: 048
     Dates: start: 20190702
  36. ABRAXANE [Suspect]
     Active Substance: PACLITAXEL
     Dosage: 125 MILLIGRAM/SQ. METER
     Route: 065
     Dates: start: 20190320, end: 20190320
  37. ABRAXANE [Suspect]
     Active Substance: PACLITAXEL
     Dosage: 93.8 MILLIGRAM/SQ. METER
     Route: 065
     Dates: start: 20190515, end: 20190515
  38. ABRAXANE [Suspect]
     Active Substance: PACLITAXEL
     Dosage: 93.8 MILLIGRAM/SQ. METER
     Route: 065
     Dates: start: 20190529, end: 20190529
  39. ABRAXANE [Suspect]
     Active Substance: PACLITAXEL
     Dosage: 93.8 MILLIGRAM/SQ. METER
     Route: 065
     Dates: start: 20190717, end: 20190717
  40. ABRAXANE [Suspect]
     Active Substance: PACLITAXEL
     Dosage: 62.5 MILLIGRAM/SQ. METER
     Route: 065
     Dates: start: 20191016, end: 20191016
  41. GEMCITABINE. [Suspect]
     Active Substance: GEMCITABINE
     Dosage: 500 MILLIGRAM/SQ. METER
     Route: 065
     Dates: start: 20190501, end: 20190501
  42. GEMCITABINE. [Suspect]
     Active Substance: GEMCITABINE
     Dosage: 750 MILLIGRAM/SQ. METER
     Route: 065
     Dates: start: 20190529, end: 20190529
  43. GEMCITABINE. [Suspect]
     Active Substance: GEMCITABINE
     Dosage: 750 MILLIGRAM/SQ. METER
     Route: 065
     Dates: start: 20190717, end: 20190717
  44. GEMCITABINE. [Suspect]
     Active Substance: GEMCITABINE
     Dosage: 500 MILLIGRAM/SQ. METER
     Route: 065
     Dates: start: 20190911, end: 20190911
  45. MEVACOR [Concomitant]
     Active Substance: LOVASTATIN
     Indication: HYPERLIPIDAEMIA
     Dosage: 20 MILLIGRAM
     Route: 048
     Dates: start: 20171009
  46. ESTRACE [Concomitant]
     Active Substance: ESTRADIOL
     Indication: VULVOVAGINAL DRYNESS
     Dosage: 1 GRAM
     Route: 061
     Dates: start: 200912
  47. MIRALAX [Concomitant]
     Active Substance: POLYETHYLENE GLYCOL 3350
     Indication: CONSTIPATION
     Dosage: 17 GRAM
     Route: 048
     Dates: start: 20190313
  48. ABRAXANE [Suspect]
     Active Substance: PACLITAXEL
     Dosage: 93.8 MILLIGRAM/SQ. METER
     Route: 065
     Dates: start: 20190522, end: 20190522
  49. ABRAXANE [Suspect]
     Active Substance: PACLITAXEL
     Dosage: 93.8 MILLIGRAM/SQ. METER
     Route: 065
     Dates: start: 20190626, end: 20190626
  50. ABRAXANE [Suspect]
     Active Substance: PACLITAXEL
     Dosage: 93.8 MILLIGRAM/SQ. METER
     Route: 065
     Dates: start: 20190724, end: 20190724
  51. ABRAXANE [Suspect]
     Active Substance: PACLITAXEL
     Dosage: 62.5 MILLIGRAM/SQ. METER
     Route: 065
     Dates: start: 20191113, end: 20191113
  52. ABRAXANE [Suspect]
     Active Substance: PACLITAXEL
     Dosage: 62.5 MILLIGRAM/SQ. METER
     Route: 065
     Dates: start: 20200108, end: 20200108
  53. GEMCITABINE. [Suspect]
     Active Substance: GEMCITABINE
     Indication: DUCTAL ADENOCARCINOMA OF PANCREAS
     Dosage: 1000 MILLIGRAM/SQ. METER
     Route: 065
     Dates: start: 20190313, end: 20190313
  54. GEMCITABINE. [Suspect]
     Active Substance: GEMCITABINE
     Dosage: 500 MILLIGRAM/SQ. METER
     Route: 065
     Dates: start: 20190918, end: 20190918
  55. COLACE [Concomitant]
     Active Substance: DOCUSATE SODIUM
     Indication: CONSTIPATION
     Dosage: 100 MILLIGRAM
     Route: 048
     Dates: start: 20190225
  56. ABRAXANE [Suspect]
     Active Substance: PACLITAXEL
     Dosage: 93.8 MILLIGRAM/SQ. METER
     Route: 065
     Dates: start: 20190619, end: 20190619
  57. ABRAXANE [Suspect]
     Active Substance: PACLITAXEL
     Dosage: 93.8 MILLIGRAM/SQ. METER
     Route: 065
     Dates: start: 20190814, end: 20190814
  58. ABRAXANE [Suspect]
     Active Substance: PACLITAXEL
     Dosage: 62.5 MILLIGRAM/SQ. METER
     Route: 065
     Dates: start: 20191106, end: 20191106
  59. GEMCITABINE. [Suspect]
     Active Substance: GEMCITABINE
     Dosage: 750 MILLIGRAM/SQ. METER
     Route: 065
     Dates: start: 20190619, end: 20190619
  60. GEMCITABINE. [Suspect]
     Active Substance: GEMCITABINE
     Dosage: 500 MILLIGRAM/SQ. METER
     Route: 065
     Dates: start: 20191016, end: 20191016
  61. GEMCITABINE. [Suspect]
     Active Substance: GEMCITABINE
     Dosage: 500 MILLIGRAM/SQ. METER
     Route: 065
     Dates: start: 20191113, end: 20191113
  62. GEMCITABINE. [Suspect]
     Active Substance: GEMCITABINE
     Dosage: 500 MILLIGRAM/SQ. METER
     Route: 065
     Dates: start: 20191204, end: 20191204
  63. GEMCITABINE. [Suspect]
     Active Substance: GEMCITABINE
     Dosage: 500 MILLIGRAM/SQ. METER
     Route: 065
     Dates: start: 20191218, end: 20191218
  64. ABRAXANE [Suspect]
     Active Substance: PACLITAXEL
     Dosage: 93.8 MILLIGRAM/SQ. METER
     Route: 065
     Dates: start: 20190612, end: 20190612
  65. GEMCITABINE. [Suspect]
     Active Substance: GEMCITABINE
     Dosage: 750 MILLIGRAM/SQ. METER
     Route: 065
     Dates: start: 20190626, end: 20190626
  66. GEMCITABINE. [Suspect]
     Active Substance: GEMCITABINE
     Dosage: 750 MILLIGRAM/SQ. METER
     Route: 065
     Dates: start: 20190821, end: 20190821
  67. VITAMIN D3 [Concomitant]
     Active Substance: CHOLECALCIFEROL
     Indication: VITAMIN SUPPLEMENTATION
     Dosage: 1000 U
     Route: 048
     Dates: start: 2009
  68. ABRAXANE [Suspect]
     Active Substance: PACLITAXEL
     Dosage: 93.8 MILLIGRAM/SQ. METER
     Route: 065
     Dates: start: 20190424, end: 20190424
  69. ABRAXANE [Suspect]
     Active Substance: PACLITAXEL
     Dosage: 50 MILLIGRAM/SQ. METER
     Route: 065
     Dates: start: 20190501, end: 20190501
  70. ABRAXANE [Suspect]
     Active Substance: PACLITAXEL
     Dosage: 62.5 MILLIGRAM/SQ. METER
     Route: 065
     Dates: start: 20191211, end: 20191211
  71. GEMCITABINE. [Suspect]
     Active Substance: GEMCITABINE
     Dosage: 750 MILLIGRAM/SQ. METER
     Route: 065
     Dates: start: 20190612, end: 20190612
  72. GEMCITABINE. [Suspect]
     Active Substance: GEMCITABINE
     Dosage: 750 MILLIGRAM/SQ. METER
     Route: 065
     Dates: start: 20190814, end: 20190814
  73. GEMCITABINE. [Suspect]
     Active Substance: GEMCITABINE
     Dosage: 500 MILLIGRAM/SQ. METER
     Route: 065
     Dates: start: 20191009, end: 20191009
  74. GEMCITABINE. [Suspect]
     Active Substance: GEMCITABINE
     Dosage: 500 MILLIGRAM/SQ. METER
     Route: 065
     Dates: start: 20191106, end: 20191106
  75. DIOVAN [Concomitant]
     Active Substance: VALSARTAN
     Indication: HYPERTENSION
     Dosage: 325 MILLIGRAM
     Route: 048
     Dates: start: 20181113
  76. MARINOL [Concomitant]
     Active Substance: DRONABINOL
     Indication: DECREASED APPETITE
     Route: 048
     Dates: start: 20190312
  77. POTASSIUM CHLORIDE. [Concomitant]
     Active Substance: POTASSIUM CHLORIDE
     Dosage: 40 MILLIEQUIVALENTS
     Route: 048
     Dates: start: 20190626, end: 20190701

REACTIONS (1)
  - Vomiting [Recovered/Resolved]

NARRATIVE: CASE EVENT DATE: 20200110
